FAERS Safety Report 8654179 (Version 4)
Quarter: 2013Q1

REPORT INFORMATION
  Report Type: Report from Study
  Country: NL (occurrence: NL)
  Receive Date: 20120709
  Receipt Date: 20130102
  Transmission Date: 20140127
  Serious: Yes (Hospitalization)
  Sender: FDA-Public Use
  Company Number: NL-JNJFOC-20120700547

PATIENT
  Age: 14 Year
  Sex: Female
  Weight: 42 kg

DRUGS (6)
  1. REMICADE [Suspect]
     Indication: CROHN^S DISEASE
     Route: 042
     Dates: start: 20061021
  2. HUMIRA [Concomitant]
     Dates: start: 20110223
  3. PREDNISONE [Concomitant]
  4. AZATHIOPRINE [Concomitant]
  5. TACROLIMUS [Concomitant]
  6. ANTIBIOTIC (NOT SPECIFIED) [Concomitant]
     Indication: CROHN^S DISEASE

REACTIONS (1)
  - Crohn^s disease [Recovered/Resolved]
